FAERS Safety Report 21856752 (Version 2)
Quarter: 2023Q1

REPORT INFORMATION
  Report Type: Report from Study
  Country: CA (occurrence: CA)
  Receive Date: 20230113
  Receipt Date: 20230215
  Transmission Date: 20230417
  Serious: Yes (Death)
  Sender: FDA-Public Use
  Company Number: CA-CELLTRION INC.-2022CA021399

PATIENT

DRUGS (1)
  1. TRUXIMA [Suspect]
     Active Substance: RITUXIMAB-ABBS
     Indication: Vasculitis
     Dosage: 1000 MILLIGRAM
     Route: 042
     Dates: start: 20220531

REACTIONS (2)
  - Death [Fatal]
  - Treatment delayed [Unknown]

NARRATIVE: CASE EVENT DATE: 20221205
